FAERS Safety Report 7091566-4 (Version None)
Quarter: 2010Q4

REPORT INFORMATION
  Report Type: 
  Country: None (occurrence: None)
  Receive Date: 20101109
  Receipt Date: 20101102
  Transmission Date: 20110411
  Serious: Yes (Hospitalization)
  Sender: FDA-Public Use
  Company Number: US-B.I. PHARMACEUTICALS,INC./RIDGEFIELD-2010-BP-12315BP

PATIENT
  Sex: Female

DRUGS (13)
  1. AGGRENOX [Suspect]
     Indication: CEREBROVASCULAR ACCIDENT
     Dosage: 25MG/200MG, 1 CAP BID
     Route: 048
     Dates: start: 20061101
  2. SPIRIVA [Suspect]
     Indication: CHRONIC OBSTRUCTIVE PULMONARY DISEASE
     Route: 055
  3. COMBIVENT [Suspect]
     Indication: CHRONIC OBSTRUCTIVE PULMONARY DISEASE
     Dosage: 18MCG/103MCG
     Route: 055
  4. LO-TROL [Concomitant]
     Indication: HYPERTENSION
  5. NITROGLYCERIN [Concomitant]
     Indication: CARDIOMYOPATHY
     Dosage: PRN
     Route: 060
  6. IMDUR [Concomitant]
     Indication: CARDIOMYOPATHY
     Dosage: PRN
     Route: 060
  7. PRILOSEC [Concomitant]
     Indication: GASTROOESOPHAGEAL REFLUX DISEASE
  8. ACTOS [Concomitant]
     Indication: TYPE 2 DIABETES MELLITUS
  9. LASIX [Concomitant]
     Indication: CARDIAC FAILURE CONGESTIVE
  10. MINOCYCLINE HCL [Concomitant]
     Indication: ABSCESS
  11. VYVAN [Concomitant]
     Indication: NARCOLEPSY
  12. ZOFRAN [Concomitant]
     Indication: NAUSEA
  13. KEPPRA [Concomitant]
     Indication: EPILEPSY

REACTIONS (2)
  - CARDIAC FAILURE CONGESTIVE [None]
  - CHEST PAIN [None]
